FAERS Safety Report 7627623-0 (Version None)
Quarter: 2011Q3

REPORT INFORMATION
  Report Type: 
  Country: None (occurrence: None)
  Receive Date: 20110713
  Receipt Date: 20110628
  Transmission Date: 20111222
  Serious: Yes (Life-Threatening, Hospitalization)
  Sender: FDA-Public Use
  Company Number: TCI2011A03771

PATIENT
  Age: 69 Year
  Sex: Male

DRUGS (3)
  1. GLIMICRON (GLICLAZIDE) [Concomitant]
  2. BASEN (VOGLIBOSE) [Concomitant]
  3. ACTOS [Suspect]
     Indication: DIABETES MELLITUS
     Dosage: 45 MG (45 MG, 1 D), PER ORAL
     Route: 048
     Dates: end: 20100601

REACTIONS (2)
  - HAEMATURIA [None]
  - BLADDER CANCER [None]
